FAERS Safety Report 6936230-4 (Version None)
Quarter: 2010Q3

REPORT INFORMATION
  Report Type: 
  Country: None (occurrence: None)
  Receive Date: 20100823
  Receipt Date: 20100811
  Transmission Date: 20110219
  Serious: Yes (Other)
  Sender: FDA-Public Use
  Company Number: JP-PFIZER INC-2010101189

PATIENT
  Age: 61 Year
  Sex: Male

DRUGS (3)
  1. GABAPEN [Suspect]
     Dosage: 1800MG/DAY
  2. ETODOLAC [Suspect]
     Dosage: 800MG/DAY
     Route: 048
  3. SELBEX [Suspect]
     Dosage: UNK
     Route: 048

REACTIONS (1)
  - VISUAL ACUITY REDUCED [None]
